FAERS Safety Report 7257998-6 (Version None)
Quarter: 2011Q1

REPORT INFORMATION
  Report Type: 
  Country: None (occurrence: None)
  Receive Date: 20110129
  Receipt Date: 20100715
  Transmission Date: 20110831
  Serious: No
  Sender: FDA-Public Use
  Company Number: US-ABBOTT-10P-163-0651576-00

PATIENT
  Age: 54 Year
  Sex: Female

DRUGS (3)
  1. HUMIRA [Suspect]
     Indication: CROHN'S DISEASE
     Dates: start: 20090401
  2. ASCORBIC ACID [Concomitant]
  3. SYNTHROID [Concomitant]

REACTIONS (4)
  - INJECTION SITE HAEMATOMA [None]
  - DEVICE MALFUNCTION [None]
  - INJECTION SITE VESICLES [None]
  - INCORRECT DOSE ADMINISTERED [None]
